FAERS Safety Report 9191755 (Version 1)
Quarter: 2013Q1

REPORT INFORMATION
  Report Type: Report from Study
  Country: US (occurrence: US)
  Receive Date: 20130326
  Receipt Date: 20130326
  Transmission Date: 20140127
  Serious: Yes (Hospitalization)
  Sender: FDA-Public Use
  Company Number: US-009507513-1303USA010876

PATIENT
  Age: 54 Year
  Sex: Female
  Weight: 99.64 kg

DRUGS (8)
  1. HEXADROL TABLETS [Suspect]
     Dosage: 4 MG, BID
     Route: 048
     Dates: start: 20121209
  2. DACOMITINIB [Suspect]
     Indication: GLIOBLASTOMA
     Dosage: 45 MG, QD
     Route: 048
     Dates: start: 20121113, end: 20121209
  3. DACOMITINIB [Suspect]
     Dosage: 45 MG, QD
     Route: 048
     Dates: start: 20121217, end: 20130114
  4. AVASTIN (BEVACIZUMAB) [Suspect]
     Indication: GLIOBLASTOMA
     Dosage: 10 MG/KG, Q3W
     Route: 042
     Dates: start: 20120817, end: 20121023
  5. LOVENOX [Suspect]
     Indication: VENOUS THROMBOSIS
     Dosage: 100 MG/ML, Q12H
     Route: 058
     Dates: start: 20121120, end: 20121218
  6. AMLODIPINE [Concomitant]
     Dosage: UNK
     Dates: start: 20121209
  7. BACTRIM DS [Concomitant]
     Dosage: UNK
     Dates: start: 20121209
  8. NEXIUM [Concomitant]
     Dosage: UNK
     Dates: start: 20121209

REACTIONS (4)
  - Gastric ulcer [Recovering/Resolving]
  - Gastric haemorrhage [Recovered/Resolved]
  - Anaemia [Recovering/Resolving]
  - Fatigue [Not Recovered/Not Resolved]
